FAERS Safety Report 6939485-5 (Version None)
Quarter: 2010Q3

REPORT INFORMATION
  Report Type: 
  Country: None (occurrence: None)
  Receive Date: 20100819
  Receipt Date: 20100805
  Transmission Date: 20110219
  Serious: Yes (Hospitalization, Disabling)
  Sender: FDA-Public Use
  Company Number: AUR-APL-2010-01331

PATIENT
  Age: 70 Year
  Sex: Male

DRUGS (8)
  1. CIPROFLOXACIN [Suspect]
     Indication: CELLULITIS
     Dosage: 750MG, BID, ORAL
     Route: 048
  2. WARFARIN SODIUM [Suspect]
     Indication: PULMONARY EMBOLISM
  3. CLOPIDOGREL [Suspect]
     Indication: CHEST PAIN
     Dosage: 75MG - DAILY
  4. ASPIRIN [Suspect]
     Indication: PULMONARY EMBOLISM
     Dosage: 300MG - DAILY
  5. ERYTHROMYCIN [Suspect]
     Indication: CELLULITIS
     Dosage: 250MG - DAILY
  6. METRONIDAZOLE [Suspect]
     Indication: CELLULITIS
     Dosage: 400MG - TID
  7. MEROPENEM [Suspect]
     Indication: CELLULITIS
     Dosage: 2G - BID - IV
     Route: 042
  8. TEICOPLANIN [Suspect]
     Indication: CELLULITIS
     Dosage: 400MG - DAILY - IM
     Route: 030

REACTIONS (14)
  - CELLULITIS [None]
  - CHALAZION [None]
  - DECREASED APPETITE [None]
  - DIABETIC RETINOPATHY [None]
  - DRUG INTERACTION [None]
  - EYE PAIN [None]
  - HEADACHE [None]
  - HYPHAEMA [None]
  - INTERNATIONAL NORMALISED RATIO INCREASED [None]
  - INTRAOCULAR PRESSURE INCREASED [None]
  - NAUSEA [None]
  - PYREXIA [None]
  - TREATMENT FAILURE [None]
  - VISUAL ACUITY REDUCED [None]
